FAERS Safety Report 21165649 (Version 5)
Quarter: 2022Q4

REPORT INFORMATION
  Report Type: Report from Study
  Country: CA (occurrence: CA)
  Receive Date: 20220803
  Receipt Date: 20221114
  Transmission Date: 20230113
  Serious: Yes (Hospitalization)
  Sender: FDA-Public Use
  Company Number: CA-MYLANLABS-2022M1082005

PATIENT
  Age: 19 Year
  Sex: Male

DRUGS (3)
  1. HULIO [Suspect]
     Active Substance: ADALIMUMAB-FKJP
     Indication: Hidradenitis
     Dosage: 160 MILLIGRAM (WEEK 1)
     Route: 058
     Dates: start: 20220715
  2. HULIO [Suspect]
     Active Substance: ADALIMUMAB-FKJP
     Dosage: 80 MILLIGRAM (WEEK 2)
     Route: 065
     Dates: start: 20220722
  3. HULIO [Suspect]
     Active Substance: ADALIMUMAB-FKJP
     Dosage: 80 MILLIGRAM (WEEKLY)
     Route: 058

REACTIONS (3)
  - Hospitalisation [Unknown]
  - Product prescribing error [Unknown]
  - Off label use [Unknown]
